FAERS Safety Report 5920009-6 (Version None)
Quarter: 2008Q4

REPORT INFORMATION
  Report Type: 
  Country: None (occurrence: None)
  Receive Date: 20081014
  Receipt Date: 20080930
  Transmission Date: 20090506
  Serious: Yes (Hospitalization, Disabling)
  Sender: FDA-Public Use
  Company Number: 2008-03418

PATIENT
  Age: 73 Year
  Sex: Male
  Weight: 105.2 kg

DRUGS (2)
  1. VELCADE [Suspect]
     Indication: MULTIPLE MYELOMA
     Dosage: 2.77 MG, IV BOLUS
     Route: 040
     Dates: start: 20080620, end: 20080829
  2. DEXAMETHASONE TAB [Suspect]
     Indication: MULTIPLE MYELOMA

REACTIONS (5)
  - ACTIVITIES OF DAILY LIVING IMPAIRED [None]
  - CELLULITIS [None]
  - ERYTHEMA [None]
  - FEELING HOT [None]
  - OEDEMA [None]
